FAERS Safety Report 8228802 (Version 12)
Quarter: 2016Q4

REPORT INFORMATION
  Report Type: Report from Study
  Country: CA (occurrence: CA)
  Receive Date: 20111104
  Receipt Date: 20161207
  Transmission Date: 20170207
  Serious: Yes (Other)
  Sender: FDA-Public Use
  Company Number: PHHY2011CA95772

PATIENT
  Age: 4 Year
  Sex: Male
  Weight: 19.8 kg

DRUGS (10)
  1. EXJADE [Suspect]
     Active Substance: DEFERASIROX
     Indication: CONGENITAL APLASTIC ANAEMIA
     Dosage: 125 MG, QOD
     Route: 048
     Dates: start: 201201
  2. EXJADE [Suspect]
     Active Substance: DEFERASIROX
     Dosage: 125 MG, QOD
     Route: 048
     Dates: start: 20121120
  3. PREVACID [Concomitant]
     Active Substance: LANSOPRAZOLE
     Indication: GASTROOESOPHAGEAL REFLUX DISEASE
     Dosage: UNK UKN, UNK
     Route: 065
  4. EXJADE [Suspect]
     Active Substance: DEFERASIROX
     Dosage: 125 MG, QD
     Route: 048
     Dates: end: 201305
  5. DESFERAL [Suspect]
     Active Substance: DEFEROXAMINE MESYLATE
     Indication: CONGENITAL APLASTIC ANAEMIA
     Dosage: 750 MG, S/C 6/7 NIGHTS PER WEEK
     Route: 042
     Dates: start: 20121129
  6. VITAMIN D [Concomitant]
     Active Substance: CHOLECALCIFEROL
     Indication: PRODUCT USED FOR UNKNOWN INDICATION
     Dosage: UNK UKN, UNK
     Route: 065
  7. PREDNISONE. [Concomitant]
     Active Substance: PREDNISONE
     Indication: PRODUCT USED FOR UNKNOWN INDICATION
     Dosage: 5 MG, BID
     Route: 048
  8. EXJADE [Suspect]
     Active Substance: DEFERASIROX
     Indication: IRON OVERLOAD
     Dosage: 250 MG, QD
     Route: 048
     Dates: start: 201101
  9. EXJADE [Suspect]
     Active Substance: DEFERASIROX
     Dosage: 375 MG, UNK
     Route: 048
  10. MULTIVIT [Concomitant]
     Active Substance: VITAMINS
     Indication: PRODUCT USED FOR UNKNOWN INDICATION
     Dosage: UNK UKN, UNK
     Route: 065

REACTIONS (24)
  - Visual acuity reduced [Not Recovered/Not Resolved]
  - Dental caries [Unknown]
  - Tooth disorder [Unknown]
  - Abnormal behaviour [Recovered/Resolved]
  - Anger [Recovered/Resolved]
  - Serum ferritin increased [Unknown]
  - Abdominal pain upper [Unknown]
  - Haemoglobin decreased [Unknown]
  - Drug intolerance [Unknown]
  - Ear infection [Unknown]
  - Fatigue [Unknown]
  - Gaze palsy [Not Recovered/Not Resolved]
  - Liver disorder [Unknown]
  - Hepatic enzyme increased [Unknown]
  - Panic attack [Unknown]
  - Hypermetropia [Unknown]
  - Aggression [Recovered/Resolved]
  - Blood phosphorus increased [Unknown]
  - Aspartate aminotransferase increased [Unknown]
  - Alanine aminotransferase increased [Unknown]
  - Abdominal discomfort [Not Recovered/Not Resolved]
  - Lung infection [Unknown]
  - Strabismus [Unknown]
  - Pain [Unknown]

NARRATIVE: CASE EVENT DATE: 201109
